FAERS Safety Report 25036512 (Version 2)
Quarter: 2025Q1

REPORT INFORMATION
  Report Type: Report from Study
  Country: FR (occurrence: FR)
  Receive Date: 20250304
  Receipt Date: 20250325
  Transmission Date: 20250409
  Serious: Yes (Hospitalization, Other)
  Sender: MYLAN
  Company Number: FR-SA-SAC20220813000114

PATIENT
  Age: 75 Year
  Sex: Male
  Weight: 80 kg

DRUGS (102)
  1. POMALIDOMIDE [Suspect]
     Active Substance: POMALIDOMIDE
     Indication: Plasma cell myeloma refractory
     Dosage: 4 MILLIGRAM, QD
     Dates: start: 20220630, end: 20220720
  2. POMALIDOMIDE [Suspect]
     Active Substance: POMALIDOMIDE
     Dosage: 3 MILLIGRAM, QD
     Dates: start: 20220728, end: 20220817
  3. POMALIDOMIDE [Suspect]
     Active Substance: POMALIDOMIDE
     Dosage: 3 MILLIGRAM, QD
     Dates: start: 20220825, end: 20220914
  4. POMALIDOMIDE [Suspect]
     Active Substance: POMALIDOMIDE
     Dosage: 3 MILLIGRAM, QD
     Dates: start: 20220922, end: 20221012
  5. POMALIDOMIDE [Suspect]
     Active Substance: POMALIDOMIDE
     Dosage: 2 MILLIGRAM, QD
     Dates: start: 20221020, end: 20221102
  6. POMALIDOMIDE [Suspect]
     Active Substance: POMALIDOMIDE
     Dosage: 2 MILLIGRAM, QD
     Dates: start: 20221020, end: 20221102
  7. POMALIDOMIDE [Suspect]
     Active Substance: POMALIDOMIDE
     Dosage: 2 MILLIGRAM, QD
     Dates: start: 20221117, end: 20221207
  8. POMALIDOMIDE [Suspect]
     Active Substance: POMALIDOMIDE
     Dosage: 2 MILLIGRAM, QD
     Dates: start: 20221215, end: 20230101
  9. POMALIDOMIDE [Suspect]
     Active Substance: POMALIDOMIDE
     Dosage: 2 MILLIGRAM, QD
     Dates: start: 20230112, end: 20230201
  10. POMALIDOMIDE [Suspect]
     Active Substance: POMALIDOMIDE
     Dosage: 2 MILLIGRAM, QD
     Dates: start: 20230209, end: 20230301
  11. POMALIDOMIDE [Suspect]
     Active Substance: POMALIDOMIDE
     Dosage: 2 MILLIGRAM, QD
     Dates: start: 20230309, end: 20230329
  12. POMALIDOMIDE [Suspect]
     Active Substance: POMALIDOMIDE
     Dosage: 2 MILLIGRAM, QD
     Dates: start: 20230406, end: 20230423
  13. POMALIDOMIDE [Suspect]
     Active Substance: POMALIDOMIDE
     Dosage: 2 MILLIGRAM, QD
     Dates: start: 20230504, end: 20230524
  14. POMALIDOMIDE [Suspect]
     Active Substance: POMALIDOMIDE
     Dosage: 2 MILLIGRAM, QD
     Dates: start: 20230601, end: 20230621
  15. POMALIDOMIDE [Suspect]
     Active Substance: POMALIDOMIDE
     Dosage: 2 MILLIGRAM, QD
     Dates: start: 20230629, end: 20230719
  16. POMALIDOMIDE [Suspect]
     Active Substance: POMALIDOMIDE
     Dosage: 2 MILLIGRAM, QD
     Dates: start: 20230727, end: 20230816
  17. POMALIDOMIDE [Suspect]
     Active Substance: POMALIDOMIDE
     Dosage: 2 MILLIGRAM, QD
     Dates: start: 20230824, end: 20230913
  18. POMALIDOMIDE [Suspect]
     Active Substance: POMALIDOMIDE
     Dosage: 2 MILLIGRAM, QD
     Dates: start: 20230921, end: 20231011
  19. POMALIDOMIDE [Suspect]
     Active Substance: POMALIDOMIDE
     Dosage: 2 MILLIGRAM, QD
     Dates: start: 20231019, end: 20231108
  20. POMALIDOMIDE [Suspect]
     Active Substance: POMALIDOMIDE
     Dosage: 2 MILLIGRAM, QD
     Dates: start: 20231116, end: 20231206
  21. POMALIDOMIDE [Suspect]
     Active Substance: POMALIDOMIDE
     Dosage: 2 MILLIGRAM, QD
     Dates: start: 20231214, end: 20240103
  22. POMALIDOMIDE [Suspect]
     Active Substance: POMALIDOMIDE
     Dosage: 2 MILLIGRAM, QD
     Dates: start: 20240111, end: 20240131
  23. POMALIDOMIDE [Suspect]
     Active Substance: POMALIDOMIDE
     Dosage: 2 MILLIGRAM, QD
     Dates: start: 20240208, end: 20240228
  24. POMALIDOMIDE [Suspect]
     Active Substance: POMALIDOMIDE
     Dosage: 2 MILLIGRAM, QD
     Dates: start: 20240208, end: 20240228
  25. POMALIDOMIDE [Suspect]
     Active Substance: POMALIDOMIDE
     Dosage: 2 MILLIGRAM, QD
     Dates: start: 20240307, end: 20240327
  26. POMALIDOMIDE [Suspect]
     Active Substance: POMALIDOMIDE
     Dosage: 2 MILLIGRAM, QD
     Dates: start: 20240404, end: 20240424
  27. POMALIDOMIDE [Suspect]
     Active Substance: POMALIDOMIDE
     Dosage: 2 MILLIGRAM, QD
     Dates: start: 20240502, end: 20240522
  28. POMALIDOMIDE [Suspect]
     Active Substance: POMALIDOMIDE
     Dosage: 2 MILLIGRAM, QD
     Dates: start: 20240530, end: 20240619
  29. POMALIDOMIDE [Suspect]
     Active Substance: POMALIDOMIDE
     Dosage: 2 MILLIGRAM, QD
     Dates: start: 20240627, end: 20240717
  30. POMALIDOMIDE [Suspect]
     Active Substance: POMALIDOMIDE
     Dosage: 2 MILLIGRAM, QD
     Dates: start: 20240725, end: 20240814
  31. POMALIDOMIDE [Suspect]
     Active Substance: POMALIDOMIDE
     Dosage: 2 MILLIGRAM, QD
     Dates: start: 20240822, end: 20240911
  32. POMALIDOMIDE [Suspect]
     Active Substance: POMALIDOMIDE
     Dosage: 2 MILLIGRAM, QD
     Dates: start: 20240919, end: 20241009
  33. POMALIDOMIDE [Suspect]
     Active Substance: POMALIDOMIDE
     Dosage: 2 MILLIGRAM, QD
     Dates: start: 20241017, end: 20241106
  34. POMALIDOMIDE [Suspect]
     Active Substance: POMALIDOMIDE
     Dosage: 2 MILLIGRAM, QD
     Dates: start: 20241114, end: 20241204
  35. POMALIDOMIDE [Suspect]
     Active Substance: POMALIDOMIDE
     Dosage: 2 MILLIGRAM, QD
     Dates: start: 20241212, end: 20250101
  36. POMALIDOMIDE [Suspect]
     Active Substance: POMALIDOMIDE
     Dosage: 2 MILLIGRAM, QD
     Dates: start: 20250109, end: 20250129
  37. POMALIDOMIDE [Suspect]
     Active Substance: POMALIDOMIDE
     Dosage: 2 MILLIGRAM, QD
     Dates: start: 20250206
  38. DEXAMETHASONE [Suspect]
     Active Substance: DEXAMETHASONE
     Indication: Plasma cell myeloma refractory
     Dosage: 20 MILLIGRAM, QW
     Dates: start: 20220630, end: 20220721
  39. DEXAMETHASONE [Suspect]
     Active Substance: DEXAMETHASONE
     Dosage: 20 MILLIGRAM, QW
     Dates: start: 20220728, end: 20220818
  40. DEXAMETHASONE [Suspect]
     Active Substance: DEXAMETHASONE
     Dosage: 20 MILLIGRAM, QW
     Dates: start: 20220825, end: 20220915
  41. DEXAMETHASONE [Suspect]
     Active Substance: DEXAMETHASONE
     Dosage: 20 MILLIGRAM, QW
     Dates: start: 20220922, end: 20221013
  42. DEXAMETHASONE [Suspect]
     Active Substance: DEXAMETHASONE
     Dosage: 20 MILLIGRAM, QW
     Dates: start: 20221020, end: 20221102
  43. DEXAMETHASONE [Suspect]
     Active Substance: DEXAMETHASONE
     Dosage: 20 MILLIGRAM, QW
     Dates: start: 20221117, end: 20221208
  44. DEXAMETHASONE [Suspect]
     Active Substance: DEXAMETHASONE
     Dosage: 20 MILLIGRAM, BIWEEKLY (20 MG, BIW)
     Dates: start: 20221215, end: 20221229
  45. DEXAMETHASONE [Suspect]
     Active Substance: DEXAMETHASONE
     Dosage: 20 MILLIGRAM, BIWEEKLY (20 MG, BIW)
     Dates: start: 20230105, end: 20230126
  46. DEXAMETHASONE [Suspect]
     Active Substance: DEXAMETHASONE
     Dosage: 20 MILLIGRAM, BIWEEKLY (20 MG, BIW)
     Dates: start: 20230202, end: 20230223
  47. DEXAMETHASONE [Suspect]
     Active Substance: DEXAMETHASONE
     Dosage: 20 MILLIGRAM, BIWEEKLY (20 MG, BIW)
     Dates: start: 20230309, end: 20230323
  48. DEXAMETHASONE [Suspect]
     Active Substance: DEXAMETHASONE
     Dosage: 20 MILLIGRAM, BIWEEKLY (20 MG, BIW)
     Dates: start: 20230406, end: 20230420
  49. DEXAMETHASONE [Suspect]
     Active Substance: DEXAMETHASONE
     Dosage: 20 MILLIGRAM, BIWEEKLY (20 MG, BIW)
     Dates: start: 20230504, end: 20230517
  50. DEXAMETHASONE [Suspect]
     Active Substance: DEXAMETHASONE
     Dosage: 20 MILLIGRAM, BIWEEKLY (20 MG, BIW)
     Dates: start: 20230601, end: 20230615
  51. DEXAMETHASONE [Suspect]
     Active Substance: DEXAMETHASONE
     Dosage: 20 MILLIGRAM, BIWEEKLY (20 MG, BIW)
     Dates: start: 20230629, end: 20230713
  52. DEXAMETHASONE [Suspect]
     Active Substance: DEXAMETHASONE
     Dosage: 20 MILLIGRAM, BIWEEKLY (20 MG, BIW)
     Dates: start: 20230727, end: 20230810
  53. DEXAMETHASONE [Suspect]
     Active Substance: DEXAMETHASONE
     Dosage: 20 MILLIGRAM, BIWEEKLY (20 MG, BIW)
     Dates: start: 20230824, end: 20230907
  54. DEXAMETHASONE [Suspect]
     Active Substance: DEXAMETHASONE
     Dosage: 20 MILLIGRAM, BIWEEKLY (20 MG, BIW)
     Dates: start: 20230921, end: 20231005
  55. DEXAMETHASONE [Suspect]
     Active Substance: DEXAMETHASONE
     Dosage: 20 MILLIGRAM, BIWEEKLY (20 MG, BIW)
     Dates: start: 20231019, end: 20231102
  56. ISATUXIMAB [Suspect]
     Active Substance: ISATUXIMAB
     Indication: Plasma cell myeloma refractory
     Dosage: 10 MILLIGRAM/KILOGRAM, QW
     Dates: start: 20220630, end: 20220721
  57. ISATUXIMAB [Suspect]
     Active Substance: ISATUXIMAB
     Dosage: 10 MILLIGRAM/KILOGRAM, BIWEEKLY (10 MG/KG, BIW)
     Dates: start: 20220728, end: 20220811
  58. ISATUXIMAB [Suspect]
     Active Substance: ISATUXIMAB
     Dosage: 10 MILLIGRAM/KILOGRAM, BIWEEKLY (10 MG/KG, BIW)
     Dates: start: 20220825, end: 20220908
  59. ISATUXIMAB [Suspect]
     Active Substance: ISATUXIMAB
     Dosage: 10 MILLIGRAM/KILOGRAM, BIWEEKLY (10 MG/KG, BIW)
     Dates: start: 20220922, end: 20221006
  60. ISATUXIMAB [Suspect]
     Active Substance: ISATUXIMAB
     Dosage: 10 MILLIGRAM/KILOGRAM, BIWEEKLY (10 MG/KG, BIW)
     Dates: start: 20221020, end: 20221102
  61. ISATUXIMAB [Suspect]
     Active Substance: ISATUXIMAB
     Dosage: 10 MILLIGRAM/KILOGRAM, BIWEEKLY (10 MG/KG, BIW)
     Dates: start: 20221117, end: 20221201
  62. ISATUXIMAB [Suspect]
     Active Substance: ISATUXIMAB
     Dosage: 10 MILLIGRAM/KILOGRAM, BIWEEKLY (10 MG/KG, BIW)
     Dates: start: 20221215, end: 20221229
  63. ISATUXIMAB [Suspect]
     Active Substance: ISATUXIMAB
     Dosage: 10 MILLIGRAM/KILOGRAM, BIWEEKLY (10 MG/KG, BIW)
     Dates: start: 20230112, end: 20230126
  64. ISATUXIMAB [Suspect]
     Active Substance: ISATUXIMAB
     Dosage: 10 MILLIGRAM/KILOGRAM, BIWEEKLY (10 MG/KG, BIW)
     Dates: start: 20230209, end: 20230223
  65. ISATUXIMAB [Suspect]
     Active Substance: ISATUXIMAB
     Dosage: 10 MILLIGRAM/KILOGRAM, BIWEEKLY (10 MG/KG, BIW)
     Dates: start: 20230309, end: 20230323
  66. ISATUXIMAB [Suspect]
     Active Substance: ISATUXIMAB
     Dosage: 10 MILLIGRAM/KILOGRAM, BIWEEKLY (10 MG/KG, BIW)
     Dates: start: 20230406, end: 20230420
  67. ISATUXIMAB [Suspect]
     Active Substance: ISATUXIMAB
     Dosage: 10 MILLIGRAM/KILOGRAM, BIWEEKLY (10 MG/KG, BIW)
     Dates: start: 20230504, end: 20230517
  68. ISATUXIMAB [Suspect]
     Active Substance: ISATUXIMAB
     Dosage: 10 MILLIGRAM/KILOGRAM, BIWEEKLY (10 MG/KG, BIW)
     Dates: start: 20230601, end: 20230615
  69. ISATUXIMAB [Suspect]
     Active Substance: ISATUXIMAB
     Dosage: 10 MILLIGRAM/KILOGRAM, BIWEEKLY (10 MG/KG, BIW)
     Dates: start: 20230629, end: 20230713
  70. ISATUXIMAB [Suspect]
     Active Substance: ISATUXIMAB
     Dosage: 10 MILLIGRAM/KILOGRAM, BIWEEKLY (10 MG/KG, BIW)
     Dates: start: 20230727, end: 20230810
  71. ISATUXIMAB [Suspect]
     Active Substance: ISATUXIMAB
     Dosage: 10 MILLIGRAM/KILOGRAM, BIWEEKLY (10 MG/KG, BIW)
     Dates: start: 20230824, end: 20230907
  72. ISATUXIMAB [Suspect]
     Active Substance: ISATUXIMAB
     Dosage: 10 MILLIGRAM/KILOGRAM, BIWEEKLY (10 MG/KG, BIW)
     Dates: start: 20230921, end: 20231005
  73. ISATUXIMAB [Suspect]
     Active Substance: ISATUXIMAB
     Dosage: 10 MILLIGRAM/KILOGRAM, BIWEEKLY (10 MG/KG, BIW)
     Dates: start: 20231019, end: 20231102
  74. ISATUXIMAB [Suspect]
     Active Substance: ISATUXIMAB
     Dosage: 10 MILLIGRAM/KILOGRAM, BIWEEKLY (10 MG/KG, BIW)
     Dates: start: 20231116, end: 20231130
  75. ISATUXIMAB [Suspect]
     Active Substance: ISATUXIMAB
     Dosage: 10 MILLIGRAM/KILOGRAM, BIWEEKLY (10 MG/KG, BIW)
     Dates: start: 20231214, end: 20231228
  76. ISATUXIMAB [Suspect]
     Active Substance: ISATUXIMAB
     Dosage: 10 MILLIGRAM/KILOGRAM, BIWEEKLY (10 MG/KG, BIW)
     Dates: start: 20240111, end: 20240125
  77. ISATUXIMAB [Suspect]
     Active Substance: ISATUXIMAB
     Dosage: 10 MILLIGRAM/KILOGRAM, BIWEEKLY (10 MG/KG, BIW)
     Dates: start: 20240208, end: 20240222
  78. ISATUXIMAB [Suspect]
     Active Substance: ISATUXIMAB
     Dates: start: 20240307, end: 20240307
  79. ISATUXIMAB [Suspect]
     Active Substance: ISATUXIMAB
     Dates: start: 20240404, end: 20240404
  80. ISATUXIMAB [Suspect]
     Active Substance: ISATUXIMAB
     Dates: start: 20240502, end: 20240502
  81. ISATUXIMAB [Suspect]
     Active Substance: ISATUXIMAB
     Dates: start: 20240627, end: 20240627
  82. ISATUXIMAB [Suspect]
     Active Substance: ISATUXIMAB
     Dates: start: 20240725, end: 20240725
  83. ISATUXIMAB [Suspect]
     Active Substance: ISATUXIMAB
     Dates: start: 20240822, end: 20240822
  84. ISATUXIMAB [Suspect]
     Active Substance: ISATUXIMAB
     Dates: start: 20240919, end: 20240919
  85. ISATUXIMAB [Suspect]
     Active Substance: ISATUXIMAB
     Dates: start: 20241017, end: 20241017
  86. ISATUXIMAB [Suspect]
     Active Substance: ISATUXIMAB
     Dates: start: 20241114, end: 20241114
  87. ISATUXIMAB [Suspect]
     Active Substance: ISATUXIMAB
     Dates: start: 20241212, end: 20241212
  88. ISATUXIMAB [Suspect]
     Active Substance: ISATUXIMAB
     Dates: start: 20250109, end: 20250109
  89. ISATUXIMAB [Suspect]
     Active Substance: ISATUXIMAB
     Dates: start: 20250206, end: 20250206
  90. LANSOPRAZOLE [Concomitant]
     Active Substance: LANSOPRAZOLE
     Indication: Gastrooesophageal reflux prophylaxis
  91. APIXABAN [Concomitant]
     Active Substance: APIXABAN
     Indication: Thrombosis prophylaxis
  92. VALACYCLOVIR HYDROCHLORIDE [Concomitant]
     Active Substance: VALACYCLOVIR HYDROCHLORIDE
     Indication: Antiviral prophylaxis
  93. BACTRIM [Concomitant]
     Active Substance: SULFAMETHOXAZOLE\TRIMETHOPRIM
     Indication: Antibiotic prophylaxis
  94. PENICILLIN V [Concomitant]
     Active Substance: PENICILLIN V
     Indication: Infection prophylaxis
  95. COLCHICINE [Concomitant]
     Active Substance: COLCHICINE
     Indication: Chondrocalcinosis
  96. FAMOTIDINE [Concomitant]
     Active Substance: FAMOTIDINE
     Indication: Premedication
     Dates: start: 20220630
  97. ACETAMINOPHEN [Concomitant]
     Active Substance: ACETAMINOPHEN
     Indication: Premedication
     Dates: start: 20220630
  98. POLARAMINE [Concomitant]
     Active Substance: DEXCHLORPHENIRAMINE MALEATE
     Indication: Premedication
     Dates: start: 20220630
  99. INSULIN NOS [Concomitant]
     Active Substance: INSULIN NOS
     Indication: Dyslipidaemia
  100. FESOTERODINE FUMARATE [Concomitant]
     Active Substance: FESOTERODINE FUMARATE
     Indication: Benign prostatic hyperplasia
  101. LYRICA [Concomitant]
     Active Substance: PREGABALIN
     Indication: Peripheral sensory neuropathy
  102. FENOFIBRATE [Concomitant]
     Active Substance: FENOFIBRATE
     Indication: Dyslipidaemia

REACTIONS (7)
  - Pneumonia respiratory syncytial viral [Recovered/Resolved]
  - Prostate cancer [Not Recovered/Not Resolved]
  - Neutropenia [Not Recovered/Not Resolved]
  - Hypokalaemia [Recovered/Resolved]
  - COVID-19 [Recovered/Resolved]
  - Diarrhoea [Not Recovered/Not Resolved]
  - Nausea [Recovered/Resolved]

NARRATIVE: CASE EVENT DATE: 20220706
